FAERS Safety Report 11682105 (Version 1)
Quarter: 2015Q4

REPORT INFORMATION
  Report Type: Spontaneous
  Country: US (occurrence: US)
  Receive Date: 20151029
  Receipt Date: 20151029
  Transmission Date: 20160304
  Serious: Yes (Other)
  Sender: FDA-Public Use
  Company Number: US-BAYER-2015-449212

PATIENT
  Age: 21 Year
  Sex: Female

DRUGS (1)
  1. MIRENA [Suspect]
     Active Substance: LEVONORGESTREL
     Dosage: 20 MCG/24HR, CONT
     Route: 015
     Dates: start: 20120413, end: 20130402

REACTIONS (12)
  - Abortion spontaneous [None]
  - Infertility female [None]
  - Anxiety [None]
  - Post-traumatic stress disorder [None]
  - Pain [None]
  - Device dislocation [None]
  - Emotional distress [None]
  - Injury [None]
  - Maternal exposure before pregnancy [None]
  - Depression [None]
  - Fallopian tube obstruction [None]
  - Device difficult to use [None]

NARRATIVE: CASE EVENT DATE: 20130401
